FAERS Safety Report 12896128 (Version 1)
Quarter: 2016Q4

REPORT INFORMATION
  Report Type: Spontaneous
  Country: US (occurrence: US)
  Receive Date: 20161031
  Receipt Date: 20161031
  Transmission Date: 20170207
  Serious: No
  Sender: FDA-Public Use
  Company Number: US-JAZZ-2016-US-016082

PATIENT
  Sex: Female

DRUGS (40)
  1. AMBIEN CR [Concomitant]
     Active Substance: ZOLPIDEM TARTRATE
  2. CELEBREX [Concomitant]
     Active Substance: CELECOXIB
  3. MOVANTIK [Concomitant]
     Active Substance: NALOXEGOL OXALATE
  4. MUNDIPUR SPAG [Concomitant]
  5. MULTIVITAMINS [Concomitant]
     Active Substance: VITAMINS
  6. NUCYNTA [Concomitant]
     Active Substance: TAPENTADOL HYDROCHLORIDE
  7. PANTOTHENIC ACID [Concomitant]
     Active Substance: PANTOTHENIC ACID
  8. DHEA [Concomitant]
     Active Substance: PRASTERONE
  9. LANSOPRAZOLE. [Concomitant]
     Active Substance: LANSOPRAZOLE
  10. PRAZOSIN HCL [Concomitant]
     Active Substance: PRAZOSIN HYDROCHLORIDE
  11. BENTONITE [Concomitant]
     Active Substance: BENTONITE
  12. GLUTATHIONE [Concomitant]
     Active Substance: GLUTATHIONE
  13. LEVOTHYROXINE. [Concomitant]
     Active Substance: LEVOTHYROXINE
  14. LIOTHYRONINE SODIUM. [Concomitant]
     Active Substance: LIOTHYRONINE SODIUM
  15. LUNESTA [Concomitant]
     Active Substance: ESZOPICLONE
  16. MECLIZINE [Concomitant]
     Active Substance: MECLIZINE HYDROCHLORIDE
  17. SODIUM CHLORIDE. [Concomitant]
     Active Substance: SODIUM CHLORIDE
  18. VENTOLIN HFA [Concomitant]
     Active Substance: ALBUTEROL SULFATE
  19. BACTRIM [Concomitant]
     Active Substance: SULFAMETHOXAZOLE\TRIMETHOPRIM
  20. EMLA [Concomitant]
     Active Substance: LIDOCAINE\PRILOCAINE
  21. ESTRADIOL. [Concomitant]
     Active Substance: ESTRADIOL
  22. IBUPROFEN. [Concomitant]
     Active Substance: IBUPROFEN
  23. PRUCALOPRIDE [Concomitant]
     Active Substance: PRUCALOPRIDE
  24. COLACE [Concomitant]
     Active Substance: DOCUSATE SODIUM
  25. CORTEF [Concomitant]
     Active Substance: HYDROCORTISONE
  26. FENTANYL. [Concomitant]
     Active Substance: FENTANYL
  27. TEA [Concomitant]
     Active Substance: TEA LEAF
  28. MELATONIN [Concomitant]
     Active Substance: MELATONIN
  29. TEFLARO [Concomitant]
     Active Substance: CEFTAROLINE FOSAMIL
  30. VANCOMYCIN [Concomitant]
     Active Substance: VANCOMYCIN
  31. XYREM [Suspect]
     Active Substance: SODIUM OXYBATE
     Indication: NARCOLEPSY
     Dosage: 4.5 G, BID
     Route: 048
     Dates: start: 201205, end: 2012
  32. ADRENAL [Concomitant]
     Active Substance: EPINEPHRINE
  33. DESMOPRESSIN ACETATE. [Concomitant]
     Active Substance: DESMOPRESSIN ACETATE
  34. DOXYCYCLINE HYCLATE. [Concomitant]
     Active Substance: DOXYCYCLINE HYCLATE
  35. MS CONTIN [Concomitant]
     Active Substance: MORPHINE SULFATE
  36. ONDANSETRON HCL [Concomitant]
     Active Substance: ONDANSETRON HYDROCHLORIDE
  37. 5-HTP [Concomitant]
     Active Substance: OXITRIPTAN
  38. PAMPRIN MAXIMUM [Concomitant]
  39. PROBIOTIC [Concomitant]
     Active Substance: PROBIOTICS NOS
  40. ZITHROMAX [Concomitant]
     Active Substance: AZITHROMYCIN DIHYDRATE

REACTIONS (2)
  - Nocturia [Unknown]
  - Dyspepsia [Unknown]

NARRATIVE: CASE EVENT DATE: 2012
